FAERS Safety Report 10185019 (Version 1)
Quarter: 2014Q2

REPORT INFORMATION
  Report Type: Spontaneous
  Country: US (occurrence: None)
  Receive Date: 20140520
  Receipt Date: 20140520
  Transmission Date: 20141212
  Serious: Yes (Hospitalization)
  Sender: FDA-Public Use
  Company Number: None

PATIENT
  Age: 51 Year
  Sex: Male

DRUGS (13)
  1. RIFABUTIN [Suspect]
     Indication: TUBERCULOSIS
     Dosage: VARIED  DAILY  PO
     Route: 048
     Dates: start: 20120925, end: 20121009
  2. ISONIAZID [Suspect]
  3. PYRAZINAMIDE [Suspect]
  4. ETHAMBUTOL [Suspect]
  5. ABACAVIR [Suspect]
  6. LAMIVUDINE [Concomitant]
  7. PYRIDOXINE [Concomitant]
  8. METHYLPREDNISOLONE [Concomitant]
  9. SULFAMETHOXAZOLE-TRIMETHOPRIM [Concomitant]
  10. ATOVAQUONE [Concomitant]
  11. DARUNAVIR [Suspect]
  12. RITONAVIR [Concomitant]
  13. ACETAMINOPHEN [Concomitant]

REACTIONS (2)
  - Aspartate aminotransferase increased [None]
  - Alanine aminotransferase increased [None]
